FAERS Safety Report 7397643-2 (Version None)
Quarter: 2011Q2

REPORT INFORMATION
  Report Type: 
  Country: None (occurrence: None)
  Receive Date: 20110406
  Receipt Date: 20110401
  Transmission Date: 20111010
  Serious: Yes (Other)
  Sender: FDA-Public Use
  Company Number: US-PFIZER INC-2010079725

PATIENT
  Sex: Female
  Weight: 63.946 kg

DRUGS (13)
  1. CITALOPRAM [Concomitant]
     Dosage: UNK
  2. LEVOTHYROXINE [Concomitant]
     Indication: THYROIDECTOMY
     Dosage: 0.112 MG, 1X/DAY
  3. TRIAMTERENE [Concomitant]
     Dosage: UNK
  4. CHANTIX [Suspect]
     Indication: SMOKING CESSATION THERAPY
     Dosage: 0.5 MG, DAILY
     Route: 048
     Dates: start: 20100616, end: 20100601
  5. TRIAMTERENE AND HYDROCHLOROTHIAZIDE [Concomitant]
     Indication: OEDEMA PERIPHERAL
     Dosage: 37.5/25
  6. ASPIRIN [Concomitant]
     Dosage: UNK
  7. CHANTIX [Suspect]
     Dosage: 1 MG, 1X/DAY
     Dates: start: 20100601
  8. PREMARIN [Concomitant]
     Dosage: UNK
  9. LEVOTHYROXINE [Concomitant]
     Dosage: UNK
  10. CHANTIX [Suspect]
     Dosage: UNK
     Route: 048
     Dates: start: 20110331
  11. CHANTIX [Suspect]
     Dosage: 0.5 MG, 2X/DAY
     Dates: start: 20100601, end: 20100601
  12. PREMARIN [Concomitant]
     Indication: HYSTERECTOMY
     Dosage: 0.625 MG, 1X/DAY
  13. CITALOPRAM [Concomitant]
     Indication: DEPRESSION
     Dosage: 40 MG, 1X/DAY

REACTIONS (4)
  - FLUID RETENTION [None]
  - ABNORMAL DREAMS [None]
  - BRONCHITIS CHRONIC [None]
  - PAROSMIA [None]
